FAERS Safety Report 21301896 (Version 1)
Quarter: 2022Q3

REPORT INFORMATION
  Report Type: Spontaneous
  Country: US (occurrence: US)
  Receive Date: 20220907
  Receipt Date: 20220907
  Transmission Date: 20221027
  Serious: Yes (Other)
  Sender: FDA-Public Use
  Company Number: US-BRISTOL-MYERS SQUIBB COMPANY-2022-099562

PATIENT
  Age: 65 Year
  Sex: Male

DRUGS (7)
  1. POMALYST [Suspect]
     Active Substance: POMALIDOMIDE
     Indication: Plasma cell myeloma
     Dosage: DOSE: 4 MG;; FREQ: ONCE DAILY FOR 21 DAYS AND 7 DAYS OFF
     Route: 048
     Dates: start: 20220712
  2. POMALYST [Suspect]
     Active Substance: POMALIDOMIDE
     Dosage: 3 MG ONCE DAILY FOR 21 DAYS AND 7 DAYS OFF
     Route: 048
  3. TYLENOL [Concomitant]
     Active Substance: ACETAMINOPHEN
  4. AMLODIPINE [Concomitant]
     Active Substance: AMLODIPINE BESYLATE
  5. ELIQUIS [Concomitant]
     Active Substance: APIXABAN
  6. DEXAMETHASONE [Concomitant]
     Active Substance: DEXAMETHASONE
  7. KYPROLIS [Concomitant]
     Active Substance: CARFILZOMIB

REACTIONS (1)
  - Neutropenia [Unknown]
